FAERS Safety Report 9327578 (Version 2)
Quarter: 2013Q2

REPORT INFORMATION
  Report Type: Spontaneous
  Country: US (occurrence: US)
  Receive Date: 20130604
  Receipt Date: 20130621
  Transmission Date: 20140414
  Serious: Yes (Other)
  Sender: FDA-Public Use
  Company Number: US-PFIZER INC-2013166449

PATIENT
  Age: 57 Year
  Sex: Female

DRUGS (6)
  1. SUTENT [Suspect]
     Dosage: 50 MG, CYCLIC (1X/DAY 4 WEEKS ON, 2 WEEKS OFF)
     Route: 048
     Dates: start: 20130423
  2. ALLEGRA [Concomitant]
     Dosage: UNK
  3. DHEA [Concomitant]
     Dosage: UNK
  4. FLUDROCORTISONE [Concomitant]
     Dosage: UNK
  5. PREDNISONE [Concomitant]
     Dosage: UNK
  6. SERTRALINE [Concomitant]
     Dosage: UNK

REACTIONS (3)
  - Oral pain [Unknown]
  - Pain in extremity [Unknown]
  - Ageusia [Unknown]
